FAERS Safety Report 7392292-4 (Version None)
Quarter: 2011Q2

REPORT INFORMATION
  Report Type: 
  Country: None (occurrence: None)
  Receive Date: 20110404
  Receipt Date: 20110330
  Transmission Date: 20111010
  Serious: Yes (Other)
  Sender: FDA-Public Use
  Company Number: US-PFIZER INC-2011071613

PATIENT
  Sex: Female
  Weight: 86 kg

DRUGS (3)
  1. PAXIL [Concomitant]
     Dosage: 40 MG, UNK
  2. CHANTIX [Suspect]
     Indication: SMOKING CESSATION THERAPY
     Dosage: 0.5 MG, 1X/DAY
     Route: 048
     Dates: start: 20110305, end: 20110301
  3. CHANTIX [Suspect]
     Dosage: 1 MG, 2X/DAY
     Route: 048
     Dates: start: 20110301

REACTIONS (3)
  - NAUSEA [None]
  - HAEMOPTYSIS [None]
  - EPISTAXIS [None]
